FAERS Safety Report 14531025 (Version 1)
Quarter: 2018Q1

REPORT INFORMATION
  Report Type: Spontaneous
  Country: US (occurrence: US)
  Receive Date: 20180214
  Receipt Date: 20180214
  Transmission Date: 20180509
  Serious: Yes (Death)
  Sender: FDA-Public Use
  Company Number: US-LANNETT COMPANY, INC.-US-2018LAN000229

PATIENT
  Age: 47 Year
  Sex: Male

DRUGS (1)
  1. OXYCODONE HCL AND ACETAMINOPHEN [Suspect]
     Active Substance: ACETAMINOPHEN\OXYCODONE HYDROCHLORIDE
     Indication: PRODUCT USED FOR UNKNOWN INDICATION
     Dosage: UNK
     Route: 048

REACTIONS (5)
  - Completed suicide [Fatal]
  - Cardio-respiratory arrest [Fatal]
  - Cardiac arrest [None]
  - Respiratory arrest [None]
  - Toxicity to various agents [Fatal]

NARRATIVE: CASE EVENT DATE: 2016
